FAERS Safety Report 23991024 (Version 2)
Quarter: 2024Q3

REPORT INFORMATION
  Report Type: Spontaneous
  Country: US (occurrence: US)
  Receive Date: 20240619
  Receipt Date: 20240722
  Transmission Date: 20241016
  Serious: Yes (Other)
  Sender: JOHNSON AND JOHNSON
  Company Number: US-JNJFOC-20240616821

PATIENT
  Sex: Male

DRUGS (3)
  1. RYBREVANT [Suspect]
     Active Substance: AMIVANTAMAB-VMJW
     Indication: Product used for unknown indication
     Route: 042
  2. TYLENOL [Suspect]
     Active Substance: ACETAMINOPHEN
     Indication: Product used for unknown indication
     Route: 050
     Dates: start: 20240531
  3. PEPCID [Concomitant]
     Active Substance: FAMOTIDINE
     Route: 050
     Dates: start: 20240531

REACTIONS (2)
  - Heart rate increased [Unknown]
  - Hypertension [Unknown]
